FAERS Safety Report 10387527 (Version 1)
Quarter: 2014Q3

REPORT INFORMATION
  Report Type: Spontaneous
  Country: US (occurrence: US)
  Receive Date: 20140815
  Receipt Date: 20140815
  Transmission Date: 20150326
  Serious: No
  Sender: FDA-Public Use
  Company Number: US-TARO-2014P1000511

PATIENT
  Age: 20 Year
  Sex: Male
  Weight: 65.77 kg

DRUGS (1)
  1. JOCK ITCH [Suspect]
     Active Substance: CLOTRIMAZOLE\TOLNAFTATE
     Indication: TINEA CRURIS
     Dosage: QD
     Route: 061
     Dates: start: 20140111

REACTIONS (1)
  - Drug ineffective [Not Recovered/Not Resolved]

NARRATIVE: CASE EVENT DATE: 201401
